FAERS Safety Report 9927299 (Version 3)
Quarter: 2015Q2

REPORT INFORMATION
  Report Type: Report from Study
  Country: CZ (occurrence: CZ)
  Receive Date: 20140226
  Receipt Date: 20150612
  Transmission Date: 20150821
  Serious: Yes (Hospitalization, Other)
  Sender: FDA-Public Use
  Company Number: PHHY2014CZ022408

PATIENT
  Age: 51 Year
  Sex: Male

DRUGS (3)
  1. MICTONORM UNO [Concomitant]
     Dosage: 30 MG, QD
     Route: 048
     Dates: start: 20130222
  2. GILENYA [Suspect]
     Active Substance: FINGOLIMOD HYDROCHLORIDE
     Indication: MULTIPLE SCLEROSIS
     Dosage: 0.5 MG, QD
     Route: 048
     Dates: start: 20130813, end: 20140115
  3. BACLOFEN. [Concomitant]
     Active Substance: BACLOFEN
     Indication: MUSCLE SPASTICITY
     Dosage: 0.5 DF, BID
     Route: 048
     Dates: start: 20130212

REACTIONS (4)
  - Multiple sclerosis relapse [Unknown]
  - Liver disorder [Recovering/Resolving]
  - Liver function test abnormal [Recovering/Resolving]
  - Gamma-glutamyltransferase increased [Recovered/Resolved]

NARRATIVE: CASE EVENT DATE: 20130910
